FAERS Safety Report 7155854-5 (Version None)
Quarter: 2010Q4

REPORT INFORMATION
  Report Type: 
  Country: None (occurrence: None)
  Receive Date: 20101123
  Receipt Date: 20101007
  Transmission Date: 20110411
  Serious: No
  Sender: FDA-Public Use
  Company Number: 011282

PATIENT
  Sex: Female
  Weight: 72.7 kg

DRUGS (7)
  1. CIMZIA [Suspect]
     Indication: CROHN'S DISEASE
     Dosage: 400 MG 1X/MONTH, SUBCUTANEOUS (IN MAR-2010, TREATMENT WAS INTERRUPTED AND WOULD LIKE TO START IN  MI
     Route: 058
     Dates: start: 20090514
  2. IMURAN [Concomitant]
  3. FLAXSEED OIL [Concomitant]
  4. PROGESTERON [Concomitant]
  5. VIVELLE [Concomitant]
  6. ESTRADIOL [Concomitant]
  7. SULFASALAZINE [Concomitant]

REACTIONS (1)
  - TWIN PREGNANCY [None]
